FAERS Safety Report 4489929-6 (Version None)
Quarter: 2004Q4

REPORT INFORMATION
  Report Type: 
  Country: None (occurrence: None)
  Receive Date: 20041025
  Receipt Date: 20041005
  Transmission Date: 20050328
  Serious: Yes (Hospitalization)
  Sender: FDA-Public Use
  Company Number: OMPQ-PR-0410S-1254

PATIENT
  Sex: Female

DRUGS (1)
  1. OMNIPAQUE 180 [Suspect]
     Dosage: 120 ML, SINGLE DOSE,EXTRAVASATION
     Dates: start: 20041005, end: 20041005

REACTIONS (2)
  - INJECTION SITE PAIN [None]
  - INJECTION SITE SWELLING [None]
